FAERS Safety Report 5509728-3 (Version None)
Quarter: 2007Q4

REPORT INFORMATION
  Report Type: 
  Country: None (occurrence: None)
  Receive Date: 20071107
  Receipt Date: 20071107
  Transmission Date: 20080405
  Serious: Yes (Hospitalization)
  Sender: FDA-Public Use
  Company Number: None

PATIENT
  Age: 81 Year
  Sex: Male
  Weight: 76 kg

DRUGS (1)
  1. DEPODUR [Suspect]
     Indication: PREOPERATIVE CARE
     Dosage: DEPODUR 8 MG X1 EPIDURAL
     Route: 008
     Dates: start: 20070308

REACTIONS (1)
  - RESPIRATORY RATE DECREASED [None]
